FAERS Safety Report 20070307 (Version 2)
Quarter: 2021Q4

REPORT INFORMATION
  Report Type: Report from Study
  Country: BR (occurrence: BR)
  Receive Date: 20211115
  Receipt Date: 20211209
  Transmission Date: 20220303
  Serious: Yes (Hospitalization, Other)
  Sender: FDA-Public Use
  Company Number: BR-NOVARTISPH-NVSC2021BR255696

PATIENT
  Age: 73 Year
  Sex: Female

DRUGS (5)
  1. LETROZOLE [Suspect]
     Active Substance: LETROZOLE
     Indication: Product used for unknown indication
     Dosage: UNK
     Route: 065
     Dates: start: 201902
  2. ALPELISIB [Suspect]
     Active Substance: ALPELISIB
     Indication: Product used for unknown indication
     Dosage: 150 MG
     Route: 065
     Dates: start: 202104
  3. ALPELISIB [Suspect]
     Active Substance: ALPELISIB
     Dosage: 300 MG
     Route: 065
     Dates: start: 202104
  4. ALPELISIB [Suspect]
     Active Substance: ALPELISIB
     Dosage: 150 MG
     Route: 065
  5. FULVESTRANT [Concomitant]
     Active Substance: FULVESTRANT
     Indication: Product used for unknown indication
     Dosage: UNK
     Route: 065
     Dates: start: 202103

REACTIONS (14)
  - Hyperglycaemia [Unknown]
  - Polyuria [Unknown]
  - Dry mouth [Unknown]
  - Weight decreased [Recovered/Resolved]
  - Arthralgia [Unknown]
  - Polydipsia [Unknown]
  - Nausea [Unknown]
  - Vomiting [Unknown]
  - Fatigue [Unknown]
  - Femur fracture [Unknown]
  - Pleural disorder [Unknown]
  - Nodule [Unknown]
  - Disease progression [Unknown]
  - Depression [Unknown]

NARRATIVE: CASE EVENT DATE: 20210101
